FAERS Safety Report 6123534-0 (Version None)
Quarter: 2009Q1

REPORT INFORMATION
  Report Type: 
  Country: None (occurrence: None)
  Receive Date: 20090318
  Receipt Date: 20090313
  Transmission Date: 20090719
  Serious: Yes (Hospitalization)
  Sender: FDA-Public Use
  Company Number: ES-MERCK-0903ESP00029

PATIENT
  Age: 60 Year
  Sex: Male

DRUGS (5)
  1. ZOCOR [Suspect]
     Indication: HYPERLIPIDAEMIA
     Route: 048
     Dates: start: 20080101, end: 20090112
  2. HYDROXYZINE HYDROCHLORIDE [Concomitant]
     Route: 065
  3. CHLORTHALIDONE [Concomitant]
     Route: 065
  4. INSULIN ASPART, BIPHASIC ISOPHANE [INJECTION] [Concomitant]
     Indication: DIABETES MELLITUS
     Route: 065
  5. EPROSARTAN MESYLATE [Concomitant]
     Route: 065

REACTIONS (2)
  - HYPOKALAEMIA [None]
  - RHABDOMYOLYSIS [None]
